APPROVED DRUG PRODUCT: METHSCOPOLAMINE BROMIDE
Active Ingredient: METHSCOPOLAMINE BROMIDE
Strength: 5MG
Dosage Form/Route: TABLET;ORAL
Application: A216786 | Product #002 | TE Code: AA
Applicant: NE RX PHARMA LLC
Approved: Feb 1, 2024 | RLD: No | RS: No | Type: RX